FAERS Safety Report 12507055 (Version 2)
Quarter: 2016Q3

REPORT INFORMATION
  Report Type: Spontaneous
  Country: CA (occurrence: CA)
  Receive Date: 20160629
  Receipt Date: 20160713
  Transmission Date: 20161109
  Serious: Yes (Other)
  Sender: FDA-Public Use
  Company Number: CA-THROMBOGENICS NV-SPO-2016-2217

PATIENT

DRUGS (1)
  1. JETREA [Suspect]
     Active Substance: OCRIPLASMIN
     Indication: VITREOUS ADHESIONS
     Dosage: 0.125 MG, ONE TIME DOSE
     Route: 031
     Dates: start: 20160613, end: 20160613

REACTIONS (8)
  - Dyschromatopsia [Not Recovered/Not Resolved]
  - Vitreous floaters [Unknown]
  - Visual acuity reduced [Not Recovered/Not Resolved]
  - Colour blindness acquired [Unknown]
  - Photopsia [Unknown]
  - Retinal injury [Unknown]
  - Visual impairment [Unknown]
  - Vision blurred [Unknown]

NARRATIVE: CASE EVENT DATE: 20160614
